FAERS Safety Report 9963442 (Version 1)
Quarter: 2014Q1

REPORT INFORMATION
  Report Type: Spontaneous
  Country: US (occurrence: US)
  Receive Date: 20140305
  Receipt Date: 20140305
  Transmission Date: 20141002
  Serious: No
  Sender: FDA-Public Use
  Company Number: US-ABBVIE-13P-163-1120481-00

PATIENT
  Age: 53 Year
  Sex: Female
  Weight: 54.48 kg

DRUGS (6)
  1. HUMIRA [Suspect]
     Indication: PSORIATIC ARTHROPATHY
     Dates: start: 20130530
  2. HUMIRA [Suspect]
     Indication: HIDRADENITIS
  3. CALCIUM MAGNESIUM ZINC [Concomitant]
     Indication: MINERAL SUPPLEMENTATION
  4. CALCIUM + VITAMIN D3 [Concomitant]
     Indication: MINERAL SUPPLEMENTATION
  5. IRON [Concomitant]
     Indication: IRON DEFICIENCY
  6. BENADRYL [Concomitant]
     Indication: PRURITUS
     Dosage: DAILY AT BEDTIME

REACTIONS (8)
  - Injection site papule [Recovered/Resolved]
  - Injection site pain [Not Recovered/Not Resolved]
  - Psoriatic arthropathy [Not Recovered/Not Resolved]
  - Headache [Not Recovered/Not Resolved]
  - Skin disorder [Not Recovered/Not Resolved]
  - Injection site papule [Unknown]
  - Wrong technique in drug usage process [Unknown]
  - Incorrect dose administered [Unknown]
